FAERS Safety Report 4597238-X (Version None)
Quarter: 2005Q1

REPORT INFORMATION
  Report Type: 
  Country: None (occurrence: None)
  Receive Date: 20050301
  Receipt Date: 20050218
  Transmission Date: 20050727
  Serious: No
  Sender: FDA-Public Use
  Company Number: 2005GB00357

PATIENT
  Age: 55 Year
  Sex: Male

DRUGS (5)
  1. NEXIUM [Suspect]
     Indication: BARRETT'S OESOPHAGUS
     Dates: start: 20030601
  2. NEXIUM [Suspect]
     Indication: HIATUS HERNIA
     Dates: start: 20030601
  3. NEXIUM [Suspect]
     Indication: BARRETT'S OESOPHAGUS
     Dosage: 40 MG BID PO
     Route: 048
     Dates: start: 20030901
  4. NEXIUM [Suspect]
     Indication: HIATUS HERNIA
     Dosage: 40 MG BID PO
     Route: 048
     Dates: start: 20030901
  5. ERYTHROMYCIN [Concomitant]

REACTIONS (13)
  - ABNORMAL FAECES [None]
  - ARTHRALGIA [None]
  - DIZZINESS [None]
  - DRY MOUTH [None]
  - DYSPNOEA [None]
  - HEADACHE [None]
  - LYMPHADENOPATHY [None]
  - NIPPLE PAIN [None]
  - PHARYNGOLARYNGEAL PAIN [None]
  - PHOTOSENSITIVITY REACTION [None]
  - SOMNOLENCE [None]
  - TONGUE BLISTERING [None]
  - VISION BLURRED [None]
